FAERS Safety Report 8588086-4 (Version None)
Quarter: 2012Q3

REPORT INFORMATION
  Report Type: 
  Country: None (occurrence: None)
  Receive Date: 20120813
  Receipt Date: 20120806
  Transmission Date: 20120928
  Serious: No
  Sender: FDA-Public Use
  Company Number: US-PFIZER INC-2012174510

PATIENT
  Age: 74 Year
  Sex: Male
  Weight: 82 kg

DRUGS (8)
  1. NEXIUM [Concomitant]
     Dosage: 40 MG, DAILY
  2. CRESTOR [Concomitant]
     Dosage: 20 MG, DAILY
  3. LASIX [Concomitant]
     Dosage: 20 MG, DAILY
  4. ZYLOPRIM [Concomitant]
     Dosage: 100 MG, DAILY
  5. COREG [Concomitant]
     Dosage: 20 MG, DAILY
  6. NITROSTAT [Suspect]
     Indication: CHEST PAIN
     Dosage: 0.4 MG, AS NEEDED
     Route: 060
     Dates: start: 20120423
  7. MICARDIS [Concomitant]
     Dosage: 80 MG, DAILY
  8. IMDUR [Concomitant]
     Dosage: 60 MG, 2X/DAY

REACTIONS (2)
  - DRUG INEFFECTIVE [None]
  - HEADACHE [None]
